FAERS Safety Report 5131315-X (Version None)
Quarter: 2006Q4

REPORT INFORMATION
  Report Type: 
  Country: None (occurrence: None)
  Receive Date: 20061020
  Receipt Date: 20061011
  Transmission Date: 20070319
  Serious: Yes (Hospitalization)
  Sender: FDA-Public Use
  Company Number: PHEH2006US12771

PATIENT
  Age: 30 Year
  Sex: Male

DRUGS (1)
  1. LAMISIL [Suspect]
     Indication: NAIL TINEA
     Dosage: 250 MG, QD
     Route: 048
     Dates: start: 20060201

REACTIONS (3)
  - LETHARGY [None]
  - PYREXIA [None]
  - WHITE BLOOD CELL COUNT DECREASED [None]
